FAERS Safety Report 4622938-2 (Version None)
Quarter: 2005Q1

REPORT INFORMATION
  Report Type: 
  Country: None (occurrence: None)
  Receive Date: 20050329
  Receipt Date: 20040614
  Transmission Date: 20050727
  Serious: No
  Sender: FDA-Public Use
  Company Number: 9799

PATIENT
  Age: 33 Year
  Sex: Female

DRUGS (2)
  1. METHOTREXATE [Suspect]
  2. ETANERCEPT [Suspect]
     Dosage: 25 MG 2/WK
     Dates: start: 20031006, end: 20040401

REACTIONS (3)
  - NORMOCHROMIC NORMOCYTIC ANAEMIA [None]
  - PRODUCTIVE COUGH [None]
  - VARICELLA [None]
